FAERS Safety Report 12939355 (Version 1)
Quarter: 2016Q4

REPORT INFORMATION
  Report Type: Spontaneous
  Country: ZA (occurrence: ZA)
  Receive Date: 20161115
  Receipt Date: 20161115
  Transmission Date: 20170207
  Serious: Yes (Other)
  Sender: FDA-Public Use
  Company Number: ZA-TEVA-709983ISR

PATIENT
  Sex: Male

DRUGS (6)
  1. CARBILEV [Concomitant]
     Active Substance: CARBIDOPA\LEVODOPA
  2. ARYCOR [Concomitant]
     Active Substance: AMIODARONE HYDROCHLORIDE
  3. ECOTRIN [Concomitant]
     Active Substance: ASPIRIN
  4. AZILECT [Suspect]
     Active Substance: RASAGILINE MESYLATE
     Dates: start: 201609, end: 20161101
  5. WARFARIN [Concomitant]
     Active Substance: WARFARIN
  6. ATORVASTATIN [Concomitant]
     Active Substance: ATORVASTATIN

REACTIONS (4)
  - Speech disorder [Recovered/Resolved]
  - Abasia [Recovered/Resolved]
  - Unresponsive to stimuli [Recovered/Resolved]
  - Mental disorder due to a general medical condition [Recovered/Resolved]

NARRATIVE: CASE EVENT DATE: 20161029
